FAERS Safety Report 11837989 (Version 6)
Quarter: 2018Q4

REPORT INFORMATION
  Report Type: Spontaneous
  Country: CA (occurrence: CA)
  Receive Date: 20151215
  Receipt Date: 20181210
  Transmission Date: 20190204
  Serious: Yes (Death, Life-Threatening, Other)
  Sender: FDA-Public Use
  Company Number: CA-PFIZER INC-2015441479

PATIENT
  Age: 77 Year
  Sex: Female

DRUGS (4)
  1. PIPERACILLIN/TAZOBACTAM [Suspect]
     Active Substance: PIPERACILLIN SODIUM\TAZOBACTAM SODIUM
     Indication: ESCHERICHIA BACTERAEMIA
  2. VANCOMYCIN HCL [Suspect]
     Active Substance: VANCOMYCIN HYDROCHLORIDE
     Indication: ENTEROCOCCAL INFECTION
     Dosage: UNK
     Route: 042
  3. PIPERACILLIN/TAZOBACTAM [Suspect]
     Active Substance: PIPERACILLIN SODIUM\TAZOBACTAM SODIUM
     Indication: HEPATIC NECROSIS
     Dosage: UNK
  4. PIPERACILLIN/TAZOBACTAM [Suspect]
     Active Substance: PIPERACILLIN SODIUM\TAZOBACTAM SODIUM
     Indication: BACTEROIDES BACTERAEMIA

REACTIONS (1)
  - Drug effect incomplete [Fatal]
